FAERS Safety Report 21097372 (Version 1)
Quarter: 2022Q3

REPORT INFORMATION
  Report Type: Spontaneous
  Country: US (occurrence: US)
  Receive Date: 20220719
  Receipt Date: 20220719
  Transmission Date: 20221026
  Serious: Yes (Hospitalization)
  Sender: FDA-Public Use
  Company Number: US-BEH-2022147460

PATIENT
  Sex: Male

DRUGS (1)
  1. PRIVIGEN [Suspect]
     Active Substance: HUMAN IMMUNOGLOBULIN G
     Indication: Chronic inflammatory demyelinating polyradiculoneuropathy
     Dosage: 30 GRAM, FOR 3 DAYS EVERY 3 WEEKS
     Route: 042
     Dates: start: 20220607

REACTIONS (4)
  - Wound infection [Unknown]
  - Osteomyelitis [Unknown]
  - No adverse event [Unknown]
  - Product dose omission issue [Unknown]
